FAERS Safety Report 15261219 (Version 1)
Quarter: 2018Q3

REPORT INFORMATION
  Report Type: Spontaneous
  Country: US (occurrence: US)
  Receive Date: 20180809
  Receipt Date: 20180809
  Transmission Date: 20181010
  Serious: No
  Sender: FDA-Public Use
  Company Number: US-009507513-1808USA002466

PATIENT
  Sex: Female

DRUGS (1)
  1. REMERON [Suspect]
     Active Substance: MIRTAZAPINE
     Dosage: UNK
     Route: 048
     Dates: start: 20180625

REACTIONS (6)
  - Somnolence [Unknown]
  - Fatigue [Unknown]
  - Malaise [Unknown]
  - Nightmare [Unknown]
  - Sleep disorder [Unknown]
  - Depressed mood [Unknown]
